FAERS Safety Report 15317262 (Version 1)
Quarter: 2018Q3

REPORT INFORMATION
  Report Type: Spontaneous
  Country: US (occurrence: US)
  Receive Date: 20180824
  Receipt Date: 20180824
  Transmission Date: 20181010
  Serious: No
  Sender: FDA-Public Use
  Company Number: US-GLAXOSMITHKLINE-US2018GSK147266

PATIENT
  Sex: Male

DRUGS (1)
  1. CARVEDILOL TABLET [Suspect]
     Active Substance: CARVEDILOL

REACTIONS (4)
  - Feeling abnormal [Unknown]
  - Influenza like illness [Unknown]
  - Confusional state [Unknown]
  - Drug hypersensitivity [Unknown]
